FAERS Safety Report 5436075-0 (Version None)
Quarter: 2007Q3

REPORT INFORMATION
  Report Type: 
  Country: None (occurrence: None)
  Receive Date: 20070831
  Receipt Date: 20070820
  Transmission Date: 20080115
  Serious: Yes (Hospitalization)
  Sender: FDA-Public Use
  Company Number: BE-AMGEN-UK238614

PATIENT
  Sex: Male

DRUGS (4)
  1. PANITUMUMAB [Suspect]
     Indication: COLORECTAL CANCER
     Dates: start: 20070625, end: 20070725
  2. 5-FU [Concomitant]
  3. LEUCOVORIN CALCIUM [Concomitant]
  4. OXALIPLATIN [Concomitant]

REACTIONS (3)
  - ANOREXIA [None]
  - ASTHENIA [None]
  - NAUSEA [None]
